FAERS Safety Report 23755936 (Version 2)
Quarter: 2024Q2

REPORT INFORMATION
  Report Type: Spontaneous
  Country: PL (occurrence: PL)
  Receive Date: 20240418
  Receipt Date: 20240422
  Transmission Date: 20240716
  Serious: No
  Sender: FDA-Public Use
  Company Number: PL-BAYER-2024A053138

PATIENT
  Age: 35 Year
  Sex: Female

DRUGS (3)
  1. LEVONORGESTREL [Suspect]
     Active Substance: LEVONORGESTREL
     Dosage: UNK
     Route: 015
  2. DOXYCYCLINE [Concomitant]
     Active Substance: DOXYCYCLINE
     Dosage: 100 MG, BID
  3. DIETHYLSTILBESTROL [Concomitant]
     Active Substance: DIETHYLSTILBESTROL

REACTIONS (3)
  - Device use issue [None]
  - Vaginal haemorrhage [Not Recovered/Not Resolved]
  - Genital haemorrhage [None]
